FAERS Safety Report 12777975 (Version 1)
Quarter: 2016Q3

REPORT INFORMATION
  Report Type: Spontaneous
  Country: US (occurrence: US)
  Receive Date: 20160924
  Receipt Date: 20160924
  Transmission Date: 20161109
  Serious: No
  Sender: FDA-Public Use
  Company Number: US-JAZZ-2016-US-010880

PATIENT
  Age: 46 Year
  Sex: Female

DRUGS (34)
  1. XYREM [Suspect]
     Active Substance: SODIUM OXYBATE
     Indication: CATAPLEXY
     Dosage: DOSE ADJUSTMENTS
     Route: 048
     Dates: start: 201304, end: 201404
  2. XYREM [Suspect]
     Active Substance: SODIUM OXYBATE
     Dosage: 2.25 G, BID
     Route: 048
     Dates: start: 201605, end: 201606
  3. XYREM [Suspect]
     Active Substance: SODIUM OXYBATE
     Dosage: 3 G, BID
     Route: 048
     Dates: start: 201606, end: 201606
  4. METHOCARBAMOL. [Concomitant]
     Active Substance: METHOCARBAMOL
  5. XYREM [Suspect]
     Active Substance: SODIUM OXYBATE
     Indication: NARCOLEPSY
     Dosage: 3 G, BID
     Route: 048
     Dates: start: 201304, end: 201304
  6. CLONIDINE HCL [Concomitant]
     Active Substance: CLONIDINE HYDROCHLORIDE
  7. AMITIZA [Concomitant]
     Active Substance: LUBIPROSTONE
  8. FROVA [Concomitant]
     Active Substance: FROVATRIPTAN SUCCINATE
  9. REMERON [Concomitant]
     Active Substance: MIRTAZAPINE
  10. ZOLPIDEM TARTRATE ER [Concomitant]
     Active Substance: ZOLPIDEM TARTRATE
  11. ALPRAZOLAM ER [Concomitant]
     Active Substance: ALPRAZOLAM
  12. POTASSIUM CHLORIDE ER [Concomitant]
     Active Substance: POTASSIUM CHLORIDE
  13. SYNTHROID [Concomitant]
     Active Substance: LEVOTHYROXINE SODIUM
  14. TOPAMAX [Concomitant]
     Active Substance: TOPIRAMATE
  15. XANAX [Concomitant]
     Active Substance: ALPRAZOLAM
  16. FLURAZEPAM [Concomitant]
     Active Substance: FLURAZEPAM\FLURAZEPAM HYDROCHLORIDE
  17. TRAZODONE [Concomitant]
     Active Substance: TRAZODONE HYDROCHLORIDE
  18. PROMETHAZINE [Concomitant]
     Active Substance: PROMETHAZINE\PROMETHAZINE HYDROCHLORIDE
  19. MARINOL [Concomitant]
     Active Substance: DRONABINOL
  20. SOMA [Concomitant]
     Active Substance: CARISOPRODOL
  21. XYREM [Suspect]
     Active Substance: SODIUM OXYBATE
     Dosage: 5.25 G, TID
     Route: 048
     Dates: start: 201503, end: 2015
  22. XYREM [Suspect]
     Active Substance: SODIUM OXYBATE
     Dosage: 5.25 G, BID
     Route: 048
     Dates: start: 2016
  23. BUMETANIDE. [Concomitant]
     Active Substance: BUMETANIDE
  24. CYMBALTA [Concomitant]
     Active Substance: DULOXETINE HYDROCHLORIDE
  25. PROMETRIUM [Concomitant]
     Active Substance: PROGESTERONE
  26. FLURAZEPAM HCL [Concomitant]
     Active Substance: FLURAZEPAM HYDROCHLORIDE
  27. XYREM [Suspect]
     Active Substance: SODIUM OXYBATE
     Dosage: 5.25 G, TID
     Route: 048
     Dates: start: 201405, end: 2014
  28. XYREM [Suspect]
     Active Substance: SODIUM OXYBATE
     Dosage: 3.75 G, BID
     Route: 048
     Dates: start: 201606, end: 2016
  29. EDLUAR [Concomitant]
     Active Substance: ZOLPIDEM TARTRATE
  30. MYRBETRIQ ER [Concomitant]
  31. XYREM [Suspect]
     Active Substance: SODIUM OXYBATE
     Dosage: 5.25 G, BID
     Route: 048
     Dates: start: 201404, end: 201405
  32. HYDROXYZINE HCL [Concomitant]
     Active Substance: HYDROXYZINE HYDROCHLORIDE
  33. GABAPENTIN. [Concomitant]
     Active Substance: GABAPENTIN
  34. CLONAZEPAM. [Concomitant]
     Active Substance: CLONAZEPAM

REACTIONS (3)
  - Insomnia [Not Recovered/Not Resolved]
  - Unevaluable event [Unknown]
  - Pain in extremity [Not Recovered/Not Resolved]

NARRATIVE: CASE EVENT DATE: 20160610
